FAERS Safety Report 11840994 (Version 1)
Quarter: 2015Q4

REPORT INFORMATION
  Report Type: Spontaneous
  Country: ES (occurrence: ES)
  Receive Date: 20151216
  Receipt Date: 20151216
  Transmission Date: 20160305
  Serious: Yes (Congenital Anomaly, Other)
  Sender: FDA-Public Use
  Company Number: ES-JNJFOC-20151212745

PATIENT

DRUGS (2)
  1. ITRACONAZOL [Suspect]
     Active Substance: ITRACONAZOLE
     Indication: VULVOVAGINAL CANDIDIASIS
     Dosage: MOTHER^S DOSING??100-400 MG/DAY.MOST COMON PRESCRIPTION 2 100 MG TABLETS/DAY
     Route: 064
  2. ITRACONAZOL [Suspect]
     Active Substance: ITRACONAZOLE
     Indication: MUCOCUTANEOUS CANDIDIASIS
     Dosage: MOTHER^S DOSING??100-400 MG/DAY.MOST COMON PRESCRIPTION 2 100 MG TABLETS/DAY
     Route: 064

REACTIONS (6)
  - Cardiac murmur [Unknown]
  - Double ureter [Unknown]
  - Developmental hip dysplasia [Unknown]
  - Multiple congenital abnormalities [Unknown]
  - Foetal exposure during pregnancy [Unknown]
  - Cryptorchism [Unknown]
